FAERS Safety Report 21362872 (Version 2)
Quarter: 2023Q2

REPORT INFORMATION
  Report Type: Spontaneous
  Country: CA (occurrence: CA)
  Receive Date: 20220922
  Receipt Date: 20230420
  Transmission Date: 20230721
  Serious: Yes (Life-Threatening, Other)
  Sender: FDA-Public Use
  Company Number: CA-AUROBINDO-AUR-APL-2022-037537

PATIENT
  Age: 26 Year
  Sex: Female

DRUGS (2)
  1. CITALOPRAM [Suspect]
     Active Substance: CITALOPRAM HYDROBROMIDE
     Indication: Product used for unknown indication
     Dosage: UNK
     Route: 065
  2. ABILIFY [Suspect]
     Active Substance: ARIPIPRAZOLE
     Indication: Depression
     Dosage: UNK, ONCE A DAY
     Route: 048

REACTIONS (6)
  - Vomiting [Unknown]
  - Dizziness [Unknown]
  - Drug interaction [Unknown]
  - Fatigue [Unknown]
  - Gait inability [Unknown]
  - Product use in unapproved indication [Unknown]
